FAERS Safety Report 4721463-8 (Version None)
Quarter: 2005Q3

REPORT INFORMATION
  Report Type: 
  Country: None (occurrence: None)
  Receive Date: 20050721
  Receipt Date: 20040923
  Transmission Date: 20060218
  Serious: Yes (Hospitalization)
  Sender: FDA-Public Use
  Company Number: US-BRISTOL-MYERS SQUIBB COMPANY-12710307

PATIENT
  Age: 8 Decade
  Sex: Female

DRUGS (6)
  1. COUMADIN [Suspect]
     Indication: CEREBROVASCULAR DISORDER
     Dosage: 1 + 1/2 MG DAILY
     Route: 048
     Dates: start: 20000101, end: 20040922
  2. COUMADIN [Suspect]
     Indication: CEREBROVASCULAR ACCIDENT
     Dosage: 1 + 1/2 MG DAILY
     Route: 048
     Dates: start: 20000101, end: 20040922
  3. ATENOLOL [Concomitant]
  4. GLUCOPHAGE [Concomitant]
  5. TEMOVATE [Concomitant]
  6. DILTIAZEM HCL [Concomitant]

REACTIONS (1)
  - INTERNATIONAL NORMALISED RATIO INCREASED [None]
